FAERS Safety Report 15230632 (Version 1)
Quarter: 2018Q3

REPORT INFORMATION
  Report Type: Spontaneous
  Country: US (occurrence: US)
  Receive Date: 20180802
  Receipt Date: 20180802
  Transmission Date: 20181010
  Serious: No
  Sender: FDA-Public Use
  Company Number: US-APOTEX-2017AP016288

PATIENT
  Sex: Female

DRUGS (1)
  1. SUMATRIPTAN TABLETS USP [Suspect]
     Active Substance: SUMATRIPTAN
     Indication: MIGRAINE
     Route: 065

REACTIONS (4)
  - Product substitution issue [Unknown]
  - Extra dose administered [Unknown]
  - Drug ineffective [Unknown]
  - Vomiting [Unknown]
